FAERS Safety Report 15390483 (Version 1)
Quarter: 2018Q3

REPORT INFORMATION
  Report Type: Spontaneous
  Country: US (occurrence: US)
  Receive Date: 20180917
  Receipt Date: 20180917
  Transmission Date: 20181010
  Serious: Yes (Hospitalization, Other)
  Sender: FDA-Public Use
  Company Number: US-ZYDUS-026925

PATIENT
  Age: 36 Year
  Sex: Male

DRUGS (2)
  1. RISPERIDONE. [Concomitant]
     Active Substance: RISPERIDONE
     Indication: SCHIZOPHRENIA
     Route: 065
  2. OLANZAPINE. [Suspect]
     Active Substance: OLANZAPINE
     Indication: SCHIZOPHRENIA
     Route: 065

REACTIONS (9)
  - Acute kidney injury [Unknown]
  - Polyuria [Unknown]
  - Weight increased [Unknown]
  - Polydipsia [Unknown]
  - Diabetic ketoacidosis [Unknown]
  - Fatigue [Unknown]
  - Confusional state [Unknown]
  - Rhabdomyolysis [Unknown]
  - Increased appetite [Unknown]
